FAERS Safety Report 5920145-4 (Version None)
Quarter: 2008Q4

REPORT INFORMATION
  Report Type: 
  Country: None (occurrence: None)
  Receive Date: 20081015
  Receipt Date: 20081015
  Transmission Date: 20090506
  Serious: Yes (Hospitalization)
  Sender: FDA-Public Use
  Company Number: None

PATIENT
  Age: 69 Year
  Weight: 73 kg

DRUGS (1)
  1. CARBAMAZEPINE [Suspect]
     Dosage: 200 MG TID PO
     Route: 048
     Dates: start: 20000914, end: 20080805

REACTIONS (10)
  - ASTHENIA [None]
  - CONFUSIONAL STATE [None]
  - DIZZINESS [None]
  - DRUG TOXICITY [None]
  - GAIT DISTURBANCE [None]
  - GENERAL PHYSICAL HEALTH DETERIORATION [None]
  - LONG QT SYNDROME [None]
  - NAUSEA [None]
  - NYSTAGMUS [None]
  - VOMITING [None]
